FAERS Safety Report 9350740 (Version 20)
Quarter: 2014Q2

REPORT INFORMATION
  Report Type: Spontaneous
  Country: US (occurrence: US)
  Receive Date: 20130617
  Receipt Date: 20140526
  Transmission Date: 20141212
  Serious: Yes (Hospitalization, Other)
  Sender: FDA-Public Use
  Company Number: PHEH2008US011959

PATIENT
  Age: 57 Year
  Sex: Female

DRUGS (84)
  1. AREDIA [Suspect]
     Indication: METASTASES TO BONE
     Dosage: 90 MG,
     Route: 042
     Dates: start: 2000
  2. AREDIA [Suspect]
     Dosage: 90 MG
     Route: 042
     Dates: end: 2002
  3. ZOMETA [Suspect]
     Indication: METASTASES TO BONE
     Route: 042
     Dates: start: 2001
  4. ZOMETA [Suspect]
     Indication: BREAST CANCER
     Dosage: 4 MG, QMO
     Dates: start: 2002, end: 2007
  5. ZOMETA [Suspect]
     Indication: PLASMA CELL MYELOMA
  6. ZOMETA [Suspect]
     Indication: OSTEOPOROSIS
  7. OPIAT [Suspect]
  8. METHADONE [Concomitant]
  9. CYMBALTA [Concomitant]
  10. XANAX [Concomitant]
  11. MS CONTIN [Concomitant]
  12. VICODIN [Concomitant]
  13. ELAVIL [Concomitant]
  14. SINGULAIR [Concomitant]
  15. ELMIRON [Concomitant]
  16. VAGIFEM [Concomitant]
  17. FASLODEX [Concomitant]
  18. CENTRUM SILVER [Concomitant]
  19. PROTONIX ^PHARMACIA^ [Concomitant]
  20. VITAMIN C [Concomitant]
  21. CALCIUM [Concomitant]
  22. OXYCONTIN [Concomitant]
  23. NORVASC                                 /DEN/ [Concomitant]
  24. OMEPRAZOLE [Concomitant]
  25. LIMBREL [Concomitant]
  26. GABAPENTIN [Concomitant]
  27. FENTANYL [Concomitant]
  28. LASIX [Concomitant]
  29. CIPRO ^MILES^ [Concomitant]
  30. BENADRYL ^ACHE^ [Concomitant]
  31. POTASSIUM [Concomitant]
  32. AVALOX [Concomitant]
  33. UROCIT-K [Concomitant]
  34. DILAUDID [Concomitant]
  35. ACIPHEX [Concomitant]
  36. NEURONTIN [Concomitant]
  37. ROBAXIN [Concomitant]
  38. TOPRAL [Concomitant]
  39. ARIXTRA [Concomitant]
  40. DOXYCYCLINE [Concomitant]
  41. EVOXAC [Concomitant]
  42. MORPHINE [Concomitant]
  43. LEXAPRO [Concomitant]
  44. TRIAMTERENE [Concomitant]
  45. PENICILLIN ^GRUNENTHAL^ [Concomitant]
  46. METOPROLOL [Concomitant]
  47. SUBUTEX [Concomitant]
  48. LYRICA [Concomitant]
  49. GLUCOSAMINE [Concomitant]
  50. ARIMIDEX ^ASTRAZENECA^ [Concomitant]
  51. VALTREX [Concomitant]
  52. BEXTRA [Concomitant]
  53. AMITRIPTYLINE [Concomitant]
  54. METHOCARBAMOL [Concomitant]
  55. LEVAQUIN [Concomitant]
  56. IBUPROFEN [Concomitant]
  57. LIDODERM [Concomitant]
  58. HYDROCHLOROTHIAZIDE [Concomitant]
  59. BACLOFEN [Concomitant]
  60. AMBIEN [Concomitant]
  61. ZITHROMAX ^HEINRICH MACK^ [Concomitant]
  62. PRELIEF [Concomitant]
  63. TOPROL XL [Concomitant]
  64. NYSTATIN [Concomitant]
  65. ENABLEX [Concomitant]
  66. NAPROSYN [Concomitant]
  67. LIORESAL ^CIBA-GEIGY^ [Concomitant]
  68. PEPCID [Concomitant]
  69. ANCEF [Concomitant]
  70. CEPASTAT [Concomitant]
  71. SONATA [Concomitant]
  72. SINEQUAN [Concomitant]
  73. NORCO [Concomitant]
  74. LIDOCAINE VISCOUS [Concomitant]
  75. FOLIC ACID [Concomitant]
  76. FISH OIL [Concomitant]
  77. VITAMIN E [Concomitant]
  78. CALCIUM WITH VITAMIN D [Concomitant]
  79. MAGNESIUM [Concomitant]
  80. PROVIGIL [Concomitant]
  81. KEFLEX                                  /UNK/ [Concomitant]
  82. PROZAC [Concomitant]
  83. FEMARA [Concomitant]
  84. ZOLOFT (SERTRALINE HYDROCHLORIDE) [Concomitant]

REACTIONS (200)
  - Cardiac failure congestive [Unknown]
  - Overdose [Unknown]
  - Diarrhoea [Unknown]
  - Urinary retention [Unknown]
  - Genital herpes [Unknown]
  - Respiratory failure [Unknown]
  - Lung infiltration [Unknown]
  - Cellulitis [Unknown]
  - Aspiration [Unknown]
  - Altered state of consciousness [Unknown]
  - Osteoarthritis [Unknown]
  - Chondromalacia [Unknown]
  - Hypertonic bladder [Unknown]
  - Sleep apnoea syndrome [Unknown]
  - Femur fracture [Recovered/Resolved]
  - Metastases to lung [Unknown]
  - Dyspnoea [Unknown]
  - Respiratory distress [Unknown]
  - Metastases to liver [Unknown]
  - Osteonecrosis of jaw [Unknown]
  - Odynophagia [Unknown]
  - Pain [Unknown]
  - Infection [Unknown]
  - Deformity [Unknown]
  - Injury [Unknown]
  - Emotional distress [Unknown]
  - Anxiety [Unknown]
  - Pain in jaw [Unknown]
  - Bone disorder [Unknown]
  - Mouth ulceration [Unknown]
  - Pulmonary oedema [Unknown]
  - Hip fracture [Unknown]
  - Fall [Unknown]
  - Facial bones fracture [Unknown]
  - Hand fracture [Unknown]
  - Synovial cyst [Unknown]
  - Joint effusion [Unknown]
  - Cystitis interstitial [Unknown]
  - Haemolytic anaemia [Unknown]
  - Tongue ulceration [Unknown]
  - Eye infection [Unknown]
  - Chest wall mass [Unknown]
  - Spinal osteoarthritis [Unknown]
  - Lymphadenopathy [Unknown]
  - Eye pain [Unknown]
  - Neck pain [Unknown]
  - Hyperkeratosis [Unknown]
  - Irritable bowel syndrome [Unknown]
  - Neuralgia [Unknown]
  - Groin pain [Unknown]
  - Glossitis [Unknown]
  - Scoliosis [Unknown]
  - Gastrointestinal inflammation [Unknown]
  - Nausea [Unknown]
  - Vomiting [Unknown]
  - Early satiety [Unknown]
  - Decreased appetite [Unknown]
  - Dyspepsia [Unknown]
  - Abdominal pain [Unknown]
  - Epistaxis [Unknown]
  - Arthralgia [Unknown]
  - Pain in extremity [Unknown]
  - Pyrexia [Unknown]
  - Dry mouth [Unknown]
  - Dizziness [Unknown]
  - Neuritis [Unknown]
  - Palpitations [Unknown]
  - Meniscus injury [Unknown]
  - Breast cancer recurrent [Unknown]
  - Spinal column stenosis [Unknown]
  - Foot deformity [Unknown]
  - Haemorrhoids [Unknown]
  - Melaena [Unknown]
  - Musculoskeletal pain [Unknown]
  - Hypomania [Unknown]
  - Mitral valve incompetence [Unknown]
  - Major depression [Unknown]
  - Proteinuria [Unknown]
  - Renal failure [Unknown]
  - Flatulence [Unknown]
  - Hepatic cyst [Unknown]
  - Urethral stenosis [Unknown]
  - Urinary tract infection [Unknown]
  - Diverticulum [Unknown]
  - Ilium fracture [Unknown]
  - Pyuria [Unknown]
  - Acquired oesophageal web [Unknown]
  - Intervertebral disc protrusion [Unknown]
  - Chronic gastritis [Unknown]
  - Incontinence [Unknown]
  - Electrocardiogram abnormal [Unknown]
  - Hiatus hernia [Unknown]
  - Anogenital warts [Unknown]
  - Carditis [Unknown]
  - Parakeratosis [Unknown]
  - Candida infection [Unknown]
  - Left atrial dilatation [Unknown]
  - Flank pain [Unknown]
  - Renal cyst [Unknown]
  - Vascular calcification [Unknown]
  - Osteosclerosis [Unknown]
  - Multiple fractures [Unknown]
  - Pigmentation disorder [Unknown]
  - Vulvovaginal pain [Unknown]
  - Joint crepitation [Unknown]
  - Bone pain [Unknown]
  - Facet joint syndrome [Unknown]
  - Vertebral foraminal stenosis [Unknown]
  - Intervertebral disc degeneration [Unknown]
  - Enthesopathy [Unknown]
  - Joint swelling [Unknown]
  - Muscle atrophy [Unknown]
  - Tendonitis [Unknown]
  - Cough [Unknown]
  - Oedema peripheral [Unknown]
  - Bruxism [Unknown]
  - Dysphonia [Unknown]
  - Chronic sinusitis [Unknown]
  - Oliguria [Unknown]
  - Lip dry [Unknown]
  - Oral discomfort [Unknown]
  - Lip swelling [Unknown]
  - Arrhythmia [Unknown]
  - Keratoacanthoma [Unknown]
  - Oesophageal spasm [Unknown]
  - Bone lesion [Unknown]
  - Excessive granulation tissue [Unknown]
  - Oesophageal dilatation [Unknown]
  - Cardiospasm [Unknown]
  - Upper-airway cough syndrome [Unknown]
  - Pollakiuria [Unknown]
  - Phlebolith [Unknown]
  - Vision blurred [Unknown]
  - Gastrooesophageal reflux disease [Unknown]
  - Bacterial infection [Unknown]
  - Bladder dysfunction [Unknown]
  - Abscess [Unknown]
  - Wound [Unknown]
  - Hyperaesthesia [Unknown]
  - Gingival ulceration [Unknown]
  - Stomatitis [Unknown]
  - Exposed bone in jaw [Unknown]
  - Neck mass [Unknown]
  - Toothache [Unknown]
  - Cardiomegaly [Unknown]
  - Jaw fracture [Unknown]
  - Arthropathy [Unknown]
  - Arthrofibrosis [Unknown]
  - Obsessive-compulsive disorder [Unknown]
  - Joint dislocation [Unknown]
  - Tooth loss [Unknown]
  - Gingival pain [Unknown]
  - Ulcer [Unknown]
  - Arthritis [Unknown]
  - Cartilage injury [Unknown]
  - Heart rate irregular [Unknown]
  - Balance disorder [Unknown]
  - Mobility decreased [Unknown]
  - Tuberculosis [Unknown]
  - Bartholin^s cyst [Unknown]
  - Oropharyngeal pain [Unknown]
  - Gait disturbance [Unknown]
  - Large intestine polyp [Unknown]
  - Dental caries [Unknown]
  - Hyperplasia [Unknown]
  - Dysphagia [Unknown]
  - Synovitis [Unknown]
  - Hyperparathyroidism [Unknown]
  - Oesophageal candidiasis [Unknown]
  - Dermatitis [Unknown]
  - Immunosuppression [Unknown]
  - Urticaria [Unknown]
  - Road traffic accident [Unknown]
  - Ligament sprain [Unknown]
  - Mental disorder [Unknown]
  - Radiculitis [Unknown]
  - Trigeminal neuralgia [Unknown]
  - Bladder irritation [Unknown]
  - Bladder discomfort [Unknown]
  - Urethritis noninfective [Unknown]
  - Pelvic pain [Unknown]
  - Bladder spasm [Unknown]
  - Calculus bladder [Unknown]
  - Joint stiffness [Unknown]
  - Bursitis [Unknown]
  - Skin abrasion [Unknown]
  - Dental plaque [Unknown]
  - Gingival swelling [Unknown]
  - Gingival inflammation [Unknown]
  - Exostosis [Unknown]
  - Pathological fracture [Unknown]
  - Foot fracture [Unknown]
  - Amnesia [Unknown]
  - Lactose intolerance [Unknown]
  - Hepatic lesion [Unknown]
  - Vulvovaginal burning sensation [Unknown]
  - Urethral disorder [Unknown]
  - Vulvovaginal erythema [Unknown]
  - Vaginal infection [Unknown]
  - Suprapubic pain [Unknown]
